FAERS Safety Report 20486551 (Version 3)
Quarter: 2023Q2

REPORT INFORMATION
  Report Type: Report from Study
  Country: DE (occurrence: DE)
  Receive Date: 20220217
  Receipt Date: 20230411
  Transmission Date: 20230721
  Serious: Yes (Death, Other)
  Sender: FDA-Public Use
  Company Number: DE-ABBVIE-22K-062-4248518-00

PATIENT
  Sex: Male
  Weight: 111 kg

DRUGS (16)
  1. CARBIDOPA\LEVODOPA [Suspect]
     Active Substance: CARBIDOPA\LEVODOPA
     Indication: Parkinson^s disease
     Dosage: MD 3,0ML CRD 4,9ML/H CRN 2,2ML/H ED 2,0ML, FIRST ADMIN DATE: 18 JAN 2022?LAST ADMIN DATE: JAN 2022
     Route: 050
     Dates: start: 20220118, end: 202201
  2. CARBIDOPA\LEVODOPA [Suspect]
     Active Substance: CARBIDOPA\LEVODOPA
     Dosage: MD: 3.0ML; CRD: 4.7ML/H; ED: 2.0ML; CRN: 2.2ML/H
     Route: 050
  3. CARBIDOPA\LEVODOPA [Suspect]
     Active Substance: CARBIDOPA\LEVODOPA
     Dosage: MD 3.0ML CRD 4.7 ML/H CRN 2.2ML/H ED AS REQUIRED, FIRST ADMIN DATE JAN 2022
     Route: 050
  4. CARBIDOPA\LEVODOPA [Suspect]
     Active Substance: CARBIDOPA\LEVODOPA
     Dosage: MD: 3.0ML; CRD: 4.7ML/H; ED: 2.0ML; CRN: 2.2ML/H, FIRST ADMIN DATE: 18 JAN 2022??MD: 3.0ML CRD: 4...
     Route: 050
  5. RIVAROXABAN [Concomitant]
     Active Substance: RIVAROXABAN
     Indication: Deep vein thrombosis
     Dosage: FORM STRENGTH: 20 MG
     Route: 065
  6. BISOPROLOL [Concomitant]
     Active Substance: BISOPROLOL
     Indication: Product used for unknown indication
     Dosage: FORM STRENGTH: 2.5 MG
     Route: 065
  7. TORSEMIDE [Concomitant]
     Active Substance: TORSEMIDE
     Indication: Product used for unknown indication
     Dosage: FORM STRENGTH: 5 MG
     Route: 065
  8. AMANTADINE [Concomitant]
     Active Substance: AMANTADINE
     Indication: Product used for unknown indication
     Dosage: FORM STRENGTH: 200 MG
     Route: 065
  9. MIRTAZAPINE [Concomitant]
     Active Substance: MIRTAZAPINE
     Indication: Product used for unknown indication
     Dosage: 0-0-0-1.5, FORM STRENGTH: 15 MG
     Route: 065
  10. QUETIAPINE [Concomitant]
     Active Substance: QUETIAPINE
     Indication: Product used for unknown indication
     Dosage: 0-0-0.5-1, FORM STRENGTH: 25 MG
     Route: 065
  11. TAMSULOSIN [Concomitant]
     Active Substance: TAMSULOSIN
     Indication: Product used for unknown indication
     Dosage: FORM STRENGTH: 0.4 MG
     Route: 065
  12. CARBIDOPA\LEVODOPA [Concomitant]
     Active Substance: CARBIDOPA\LEVODOPA
     Indication: Product used for unknown indication
     Dosage: 100/25 MG, 1 TABLET 30 MINUTES BEFORE EATING OR 2.5 HOURS AFTER EATING
     Route: 065
  13. Prednitop [Concomitant]
     Indication: Drug hypersensitivity
     Dosage: TILL HEALING
     Route: 065
  14. XARELTO [Concomitant]
     Active Substance: RIVAROXABAN
     Indication: Anticoagulant therapy
     Dosage: FORM STRENGTH: 20 MG
     Route: 065
     Dates: end: 202201
  15. XARELTO [Concomitant]
     Active Substance: RIVAROXABAN
     Indication: Anticoagulant therapy
     Dates: end: 202201
  16. PIPERACILLIN SODIUM\TAZOBACTAM SODIUM [Concomitant]
     Active Substance: PIPERACILLIN SODIUM\TAZOBACTAM SODIUM
     Indication: Pneumonia aspiration
     Route: 042

REACTIONS (25)
  - Device related sepsis [Fatal]
  - Inguinal hernia repair [Unknown]
  - Urosepsis [Unknown]
  - Pneumonia aspiration [Not Recovered/Not Resolved]
  - C-reactive protein increased [Not Recovered/Not Resolved]
  - Body temperature increased [Not Recovered/Not Resolved]
  - General physical health deterioration [Unknown]
  - Therapeutic product effect variable [Unknown]
  - Pain [Unknown]
  - Inflammation [Unknown]
  - Gait disturbance [Unknown]
  - Skin infection [Unknown]
  - Fall [Unknown]
  - Muscular weakness [Unknown]
  - Motor dysfunction [Unknown]
  - Hyperkinesia [Unknown]
  - Dystonia [Unknown]
  - Choking [Unknown]
  - Mobility decreased [Unknown]
  - Kyphosis [Unknown]
  - Pyrexia [Unknown]
  - Cognitive disorder [Unknown]
  - Cardiac failure [Unknown]
  - Bladder hypertrophy [Unknown]
  - Urinary tract infection [Unknown]

NARRATIVE: CASE EVENT DATE: 20220101
